FAERS Safety Report 22337537 (Version 1)
Quarter: 2023Q2

REPORT INFORMATION
  Report Type: Spontaneous
  Country: JP (occurrence: JP)
  Receive Date: 20230518
  Receipt Date: 20230518
  Transmission Date: 20230721
  Serious: Yes (Other)
  Sender: FDA-Public Use
  Company Number: JP-ViiV Healthcare Limited-JP2023JPN069404

PATIENT

DRUGS (3)
  1. DOVATO [Suspect]
     Active Substance: DOLUTEGRAVIR SODIUM\LAMIVUDINE
     Dosage: UNK
  2. ENTECAVIR [Concomitant]
     Active Substance: ENTECAVIR
     Dosage: UNK
  3. BIKTARVY [Concomitant]
     Active Substance: BICTEGRAVIR SODIUM\EMTRICITABINE\TENOFOVIR ALAFENAMIDE FUMARATE
     Dosage: UNK

REACTIONS (1)
  - Hepatitis B [Unknown]
